FAERS Safety Report 16582848 (Version 2)
Quarter: 2019Q3

REPORT INFORMATION
  Report Type: Spontaneous
  Country: GB (occurrence: GB)
  Receive Date: 20190717
  Receipt Date: 20190731
  Transmission Date: 20191004
  Serious: Yes (Life-Threatening, Other)
  Sender: FDA-Public Use
  Company Number: GB-CHIESI USA, INC.-GB-2019CHI000271

PATIENT

DRUGS (4)
  1. GENTAMYCIN                         /00047101/ [Concomitant]
     Active Substance: GENTAMICIN
     Indication: STREPTOCOCCUS TEST POSITIVE
     Dosage: UNK
     Route: 042
     Dates: start: 20190621
  2. CUROSURF [Suspect]
     Active Substance: PORACTANT ALFA
     Indication: NEONATAL RESPIRATORY DISTRESS SYNDROME
     Dosage: 240 MG, SINGLE
     Route: 007
     Dates: start: 20190621, end: 20190621
  3. CUROSURF [Suspect]
     Active Substance: PORACTANT ALFA
     Dosage: 360 MG, SINGLE
     Route: 007
     Dates: start: 20190622, end: 20190622
  4. BENZYLPENICILLIN [Concomitant]
     Active Substance: PENICILLIN G
     Indication: STREPTOCOCCUS TEST POSITIVE
     Dosage: UNK
     Route: 042
     Dates: start: 20190621

REACTIONS (7)
  - Overdose [Recovered/Resolved]
  - Product administration error [Recovered/Resolved]
  - Inappropriate schedule of product administration [Recovered/Resolved]
  - Cyanosis neonatal [Recovered/Resolved]
  - Neonatal pneumothorax [Recovered/Resolved]
  - Oxygen saturation decreased [Recovered/Resolved]
  - Bradycardia neonatal [Recovered/Resolved]

NARRATIVE: CASE EVENT DATE: 20190621
